FAERS Safety Report 5176416-5 (Version None)
Quarter: 2006Q4

REPORT INFORMATION
  Report Type: 
  Country: None (occurrence: None)
  Receive Date: 20061215
  Receipt Date: 20061108
  Transmission Date: 20070319
  Serious: Yes (Death)
  Sender: FDA-Public Use
  Company Number: BE-ELI_LILLY_AND_COMPANY-BE200611001344

PATIENT
  Age: 75 Year
  Sex: Female

DRUGS (8)
  1. CYMBALTA [Suspect]
     Indication: DEPRESSION
     Dosage: 60 MG, DAILY (1/D)
     Route: 048
     Dates: start: 20061003
  2. ASAFLOW [Concomitant]
     Indication: CARDIOVASCULAR DISORDER
     Dosage: 160 MG, DAILY (1/D)
     Route: 065
  3. IBUPROFEN [Concomitant]
     Indication: PAIN
     Dosage: 1600 MG, DAILY (1/D)
  4. CONTRAMAL [Concomitant]
     Indication: PAIN
     Dosage: 45 UNK, UNK
  5. RIVOTRIL                                /NOR/ [Concomitant]
     Indication: AGITATION
     Dosage: 3 MG, UNK
  6. RISPERDAL /SWE/ [Concomitant]
  7. TENORMIN                                /NEZ/ [Concomitant]
     Indication: CARDIOVASCULAR DISORDER
     Dosage: 25 MG, DAILY (1/D)
  8. MAGNESIUM [Concomitant]
     Dosage: UNK, UNKNOWN
     Route: 065

REACTIONS (4)
  - CIRCULATORY COLLAPSE [None]
  - GAMMA-GLUTAMYLTRANSFERASE INCREASED [None]
  - RED BLOOD CELL SEDIMENTATION RATE INCREASED [None]
  - SUDDEN DEATH [None]
